FAERS Safety Report 23430520 (Version 1)
Quarter: 2024Q1

REPORT INFORMATION
  Report Type: Spontaneous
  Country: AU (occurrence: AU)
  Receive Date: 20240123
  Receipt Date: 20240123
  Transmission Date: 20240410
  Serious: Yes (Other)
  Sender: FDA-Public Use
  Company Number: AU-BoehringerIngelheim-2024-BI-002679

PATIENT
  Sex: Male

DRUGS (10)
  1. MELOXICAM [Suspect]
     Active Substance: MELOXICAM
     Indication: Ankylosing spondylitis
  2. OPDIVO [Suspect]
     Active Substance: NIVOLUMAB
     Indication: Metastatic malignant melanoma
     Dates: start: 202310
  3. BASICA ACTIVE [Concomitant]
     Indication: Product used for unknown indication
  4. neurocalm [Concomitant]
     Indication: Product used for unknown indication
  5. INFLA MOOD [Concomitant]
     Indication: Product used for unknown indication
  6. MULTIGEN BIOTIC [Concomitant]
     Indication: Product used for unknown indication
  7. CARTRIN [Concomitant]
     Indication: Product used for unknown indication
  8. fibroplex magactive [Concomitant]
     Indication: Product used for unknown indication
  9. mg optima relax [Concomitant]
     Indication: Product used for unknown indication
  10. inflagesic [Concomitant]
     Indication: Product used for unknown indication

REACTIONS (3)
  - Ankylosing spondylitis [Unknown]
  - Gastritis [Unknown]
  - Off label use [Unknown]

NARRATIVE: CASE EVENT DATE: 20231001
